FAERS Safety Report 6525061-5 (Version None)
Quarter: 2009Q4

REPORT INFORMATION
  Report Type: 
  Country: None (occurrence: None)
  Receive Date: 20091223
  Receipt Date: 20091208
  Transmission Date: 20100525
  Serious: Yes (Hospitalization)
  Sender: FDA-Public Use
  Company Number: 8054424

PATIENT
  Sex: Male
  Weight: 50 kg

DRUGS (6)
  1. CERTOLIZUMAB PEGOL [Suspect]
     Indication: RHEUMATOID ARTHRITIS
     Dosage: 400 MG, ONCE MONTHLY SUBCUTANEOUS
     Route: 058
     Dates: start: 20030916, end: 20040203
  2. CERTOLIZUMAB PEGOL [Suspect]
     Indication: RHEUMATOID ARTHRITIS
     Dosage: 400 MG, ONCE MONTHLY SUBCUTANEOUS
     Route: 058
     Dates: start: 20040305, end: 20090814
  3. CELEBREX [Concomitant]
  4. ALEVE (CAPLET) [Concomitant]
  5. ACYCLOVIR [Concomitant]
  6. UNASYN [Concomitant]

REACTIONS (10)
  - CENTRAL NERVOUS SYSTEM LESION [None]
  - CHRONIC OBSTRUCTIVE PULMONARY DISEASE [None]
  - CONSTIPATION [None]
  - DRUG DOSE OMISSION [None]
  - GASTRITIS [None]
  - LUNG ADENOCARCINOMA [None]
  - LYMPHADENOPATHY [None]
  - METASTASES TO CENTRAL NERVOUS SYSTEM [None]
  - NIGHT SWEATS [None]
  - RIB FRACTURE [None]
